FAERS Safety Report 7049811-7 (Version None)
Quarter: 2010Q4

REPORT INFORMATION
  Report Type: 
  Country: None (occurrence: None)
  Receive Date: 20101018
  Receipt Date: 20100916
  Transmission Date: 20110411
  Serious: No
  Sender: FDA-Public Use
  Company Number: US-BAYER-201034136NA

PATIENT
  Sex: Female

DRUGS (2)
  1. BETASERON [Suspect]
     Indication: MULTIPLE SCLEROSIS
  2. EXTAVIA [Concomitant]
     Indication: MULTIPLE SCLEROSIS
     Dosage: TOTAL DAILY DOSE: 0.25 MG
     Route: 058
     Dates: start: 20100501

REACTIONS (2)
  - ASTHENIA [None]
  - FATIGUE [None]
